FAERS Safety Report 10853002 (Version 2)
Quarter: 2015Q1

REPORT INFORMATION
  Report Type: Spontaneous
  Country: US (occurrence: US)
  Receive Date: 20150223
  Receipt Date: 20150227
  Transmission Date: 20150721
  Serious: No
  Sender: FDA-Public Use
  Company Number: US-AMGEN-USASL2015015137

PATIENT
  Age: 47 Year
  Sex: Female

DRUGS (1)
  1. ENBREL [Suspect]
     Active Substance: ETANERCEPT
     Indication: RHEUMATOID ARTHRITIS
     Dosage: 25 MG, UNK
     Route: 058
     Dates: start: 20000101

REACTIONS (10)
  - Injection site pain [Recovered/Resolved]
  - Sinusitis [Recovered/Resolved]
  - Eye infection [Recovered/Resolved]
  - Herpes zoster [Recovered/Resolved]
  - Sinus congestion [Recovered/Resolved]
  - Feeling abnormal [Recovered/Resolved]
  - Influenza [Recovered/Resolved]
  - Peripheral swelling [Recovered/Resolved]
  - Nasopharyngitis [Recovered/Resolved]
  - Joint swelling [Recovered/Resolved]
